FAERS Safety Report 10267876 (Version 1)
Quarter: 2014Q2

REPORT INFORMATION
  Report Type: Spontaneous
  Country: US (occurrence: None)
  Receive Date: 20140626
  Receipt Date: 20140626
  Transmission Date: 20141212
  Serious: Yes (Hospitalization)
  Sender: FDA-Public Use
  Company Number: None

PATIENT
  Age: 59 Year
  Sex: Male
  Weight: 110 kg

DRUGS (1)
  1. MORPHINE [Suspect]
     Dosage: MG BID PO
     Route: 048
     Dates: start: 20120701, end: 20130408

REACTIONS (1)
  - Respiratory depression [None]
